FAERS Safety Report 6422870-8 (Version None)
Quarter: 2009Q4

REPORT INFORMATION
  Report Type: 
  Country: None (occurrence: None)
  Receive Date: 20091102
  Receipt Date: 20091023
  Transmission Date: 20100525
  Serious: Yes (Other)
  Sender: FDA-Public Use
  Company Number: US-ROCHE-662571

PATIENT
  Sex: Male
  Weight: 90.7 kg

DRUGS (2)
  1. PEGASYS [Suspect]
     Indication: HEPATITIS C
     Dosage: FORM: PRE-FILLED SYRINGE
     Route: 058
     Dates: start: 20090606, end: 20090701
  2. RIBAVIRON C [Suspect]
     Indication: HEPATITIS C
     Dosage: DRUG REPORTED AS RIBAVIRON
     Route: 048
     Dates: start: 20090606, end: 20090701

REACTIONS (6)
  - ABDOMINAL PAIN UPPER [None]
  - ANAEMIA [None]
  - ANXIETY [None]
  - CARDIOMEGALY [None]
  - CHEST PAIN [None]
  - FULL BLOOD COUNT DECREASED [None]
